FAERS Safety Report 14282423 (Version 2)
Quarter: 2017Q4

REPORT INFORMATION
  Report Type: Report from Study
  Country: GB (occurrence: GB)
  Receive Date: 20171213
  Receipt Date: 20171222
  Transmission Date: 20180321
  Serious: Yes (Hospitalization)
  Sender: FDA-Public Use
  Company Number: GB-PFIZER INC-2017519415

PATIENT
  Age: 63 Year
  Sex: Male
  Weight: 86.5 kg

DRUGS (10)
  1. ASPIRIN (E.C.) [Concomitant]
     Active Substance: ASPIRIN
     Indication: MYOCARDIAL ISCHAEMIA
     Dosage: 75 MG, 1X/DAY
     Route: 048
     Dates: start: 1980
  2. PARACETAMOL [Concomitant]
     Active Substance: ACETAMINOPHEN
     Indication: MUSCULOSKELETAL CHEST PAIN
     Dosage: 1 G, 2X/DAY
     Route: 048
     Dates: start: 201703
  3. IBUPROFEN. [Concomitant]
     Active Substance: IBUPROFEN
     Indication: MUSCULOSKELETAL CHEST PAIN
     Dosage: 400 MG, 4X/DAY
     Route: 048
     Dates: start: 201703
  4. PALBOCICLIB [Suspect]
     Active Substance: PALBOCICLIB
     Indication: LUNG ADENOCARCINOMA
     Dosage: 125 MG, CYCLIC (21 DAYS ON, 7 DAYS OFF)
     Dates: start: 20171103, end: 20171123
  5. CLOTRIMAZOLE. [Concomitant]
     Active Substance: CLOTRIMAZOLE
     Indication: FUNGAL INFECTION
     Dosage: 5 MG, 1X/DAY
     Route: 061
     Dates: start: 20171103, end: 20171109
  6. ORAMORPH [Concomitant]
     Active Substance: MORPHINE SULFATE
     Indication: MUSCULOSKELETAL CHEST PAIN
     Dosage: 10 MG, AS NEEDED
     Route: 048
     Dates: start: 201703
  7. ZOMORPH [Concomitant]
     Active Substance: MORPHINE SULFATE
     Indication: MUSCULOSKELETAL CHEST PAIN
     Dosage: 40 MG, 2X/DAY
     Route: 048
     Dates: start: 201703
  8. ATENOLOL. [Concomitant]
     Active Substance: ATENOLOL
     Indication: MYOCARDIAL ISCHAEMIA
     Dosage: 50 MG, 1X/DAY
     Route: 048
     Dates: start: 1980
  9. SIMVASTATIN. [Concomitant]
     Active Substance: SIMVASTATIN
     Indication: BLOOD CHOLESTEROL INCREASED
     Dosage: 40 MG, UNK
     Route: 048
     Dates: start: 1980
  10. PREGABALIN. [Concomitant]
     Active Substance: PREGABALIN
     Indication: MUSCULOSKELETAL CHEST PAIN
     Dosage: 75 MG, 2X/DAY
     Route: 048
     Dates: start: 201703

REACTIONS (1)
  - Hypotension [Recovered/Resolved]

NARRATIVE: CASE EVENT DATE: 20171201
